FAERS Safety Report 18291674 (Version 1)
Quarter: 2020Q3

REPORT INFORMATION
  Report Type: Spontaneous
  Country: FR (occurrence: FR)
  Receive Date: 20200922
  Receipt Date: 20200922
  Transmission Date: 20201103
  Serious: Yes (Hospitalization)
  Sender: FDA-Public Use
  Company Number: FR-BAXTER-2020BAX013367

PATIENT
  Age: 12 Year
  Sex: Male
  Weight: 42.7 kg

DRUGS (2)
  1. HOLOXAN 2000 MG, POUDRE POUR USAGE PARENTERAL [Suspect]
     Active Substance: IFOSFAMIDE
     Indication: OSTEOSARCOMA
     Dosage: 4 GRAMS ON 16 JUNE 2020
     Route: 041
     Dates: start: 20191129, end: 20200616
  2. METHOTREXATE MYLAN [Suspect]
     Active Substance: METHOTREXATE SODIUM
     Indication: OSTEOSARCOMA
     Dosage: 16.1 GRAM RECEIVED ON 09/06/2020
     Route: 041
     Dates: start: 20191107, end: 20200609

REACTIONS (2)
  - Leukoencephalopathy [Recovered/Resolved with Sequelae]
  - Central nervous system necrosis [Not Recovered/Not Resolved]

NARRATIVE: CASE EVENT DATE: 20200616
